FAERS Safety Report 4822255-1 (Version None)
Quarter: 2005Q4

REPORT INFORMATION
  Report Type: 
  Country: None (occurrence: None)
  Receive Date: 20051107
  Receipt Date: 20051031
  Transmission Date: 20060501
  Serious: Yes (Other)
  Sender: FDA-Public Use
  Company Number: GB-MERCK-0511GBR00018

PATIENT
  Age: 64 Year
  Sex: Female
  Weight: 79 kg

DRUGS (12)
  1. ZETIA [Suspect]
     Indication: BLOOD CHOLESTEROL INCREASED
     Route: 048
     Dates: start: 20050929, end: 20051005
  2. CLOPIDOGREL BISULFATE [Concomitant]
     Route: 048
  3. ASPIRIN [Concomitant]
     Route: 048
  4. RAMIPRIL [Concomitant]
     Route: 048
  5. LANSOPRAZOLE [Concomitant]
     Route: 048
  6. AMITRIPTYLINE HYDROCHLORIDE [Concomitant]
     Route: 048
  7. METFORMIN [Concomitant]
     Route: 048
  8. ATENOLOL [Concomitant]
     Route: 048
  9. ATORVASTATIN CALCIUM [Concomitant]
     Route: 048
  10. NICORANDIL [Concomitant]
     Route: 048
  11. INSULIN ASPART [Concomitant]
     Route: 058
  12. INSULIN ASPART [Concomitant]
     Route: 058

REACTIONS (1)
  - DERMATITIS BULLOUS [None]
